FAERS Safety Report 21985675 (Version 1)
Quarter: 2023Q1

REPORT INFORMATION
  Report Type: Spontaneous
  Country: US (occurrence: None)
  Receive Date: 20230211
  Receipt Date: 20230211
  Transmission Date: 20230417
  Serious: Yes (Disabling)
  Sender: FDA-Public Use
  Company Number: None

PATIENT
  Age: 30 Year
  Sex: Female
  Weight: 92.7 kg

DRUGS (9)
  1. .DELTA.8-TETRAHYDROCANNABINOL\HERBALS [Suspect]
     Active Substance: .DELTA.8-TETRAHYDROCANNABINOL\HERBALS
     Indication: Sleep disorder
     Dosage: OTHER QUANTITY : 1 1ML CARTRIDGE;?
     Route: 055
     Dates: start: 20220409, end: 20230131
  2. .DELTA.8-TETRAHYDROCANNABINOL\HERBALS [Suspect]
     Active Substance: .DELTA.8-TETRAHYDROCANNABINOL\HERBALS
     Indication: Feeling of relaxation
  3. PAXIL [Concomitant]
     Active Substance: PAROXETINE HYDROCHLORIDE
  4. Holter Heart Monitor [Concomitant]
  5. XANAX [Concomitant]
     Active Substance: ALPRAZOLAM
  6. VITAMIN B6 [Concomitant]
     Active Substance: PYRIDOXINE HYDROCHLORIDE
  7. VITAMIN B12 [Concomitant]
     Active Substance: CYANOCOBALAMIN
  8. Fish Oi [Concomitant]
  9. VITAMIN D3 [Concomitant]
     Active Substance: CHOLECALCIFEROL

REACTIONS (18)
  - Panic disorder [None]
  - Palpitations [None]
  - Dizziness [None]
  - Feeling abnormal [None]
  - Visual impairment [None]
  - Dyspnoea [None]
  - Hyperventilation [None]
  - Chest pain [None]
  - Tremor [None]
  - Hot flush [None]
  - Cold sweat [None]
  - Chills [None]
  - Anxiety [None]
  - Insomnia [None]
  - Oropharyngeal discomfort [None]
  - Gait disturbance [None]
  - Dizziness [None]
  - Emotional distress [None]

NARRATIVE: CASE EVENT DATE: 20230201
